FAERS Safety Report 8314554-6 (Version None)
Quarter: 2012Q2

REPORT INFORMATION
  Report Type: 
  Country: None (occurrence: None)
  Receive Date: 20120426
  Receipt Date: 20120419
  Transmission Date: 20120825
  Serious: Yes (Other)
  Sender: FDA-Public Use
  Company Number: DE-UCBSA-048526

PATIENT
  Sex: Female
  Weight: 68 kg

DRUGS (7)
  1. CIMZIA [Suspect]
     Indication: RHEUMATOID ARTHRITIS
     Route: 058
     Dates: start: 20111103, end: 20110101
  2. PREDNISOLONE [Concomitant]
  3. ARAVA [Concomitant]
     Dates: start: 20100719
  4. CIMZIA [Suspect]
     Route: 058
  5. CIMZIA [Suspect]
     Route: 058
     Dates: start: 20120110, end: 20120227
  6. LEVOTHYROXINE SODIUM [Concomitant]
     Indication: HYPOTHYROIDISM
     Route: 048
  7. ARAVA [Concomitant]
     Dates: start: 20100419, end: 20100510

REACTIONS (2)
  - CARDIAC FAILURE [None]
  - OEDEMA PERIPHERAL [None]
